FAERS Safety Report 10364503 (Version 1)
Quarter: 2014Q3

REPORT INFORMATION
  Report Type: Spontaneous
  Country: US (occurrence: None)
  Receive Date: 20140804
  Receipt Date: 20140804
  Transmission Date: 20150326
  Serious: Yes (Life-Threatening, Disabling)
  Sender: FDA-Public Use
  Company Number: None

PATIENT
  Sex: Male
  Weight: 81.65 kg

DRUGS (2)
  1. KLONOPIN [Suspect]
     Active Substance: CLONAZEPAM
     Indication: ADVERSE DRUG REACTION
     Route: 048
     Dates: start: 20130902, end: 20140801
  2. KLONOPIN [Suspect]
     Active Substance: CLONAZEPAM
     Route: 048
     Dates: start: 20130902, end: 20140801

REACTIONS (5)
  - Withdrawal syndrome [None]
  - Intentional product misuse [None]
  - Dependence [None]
  - Treatment noncompliance [None]
  - Toxicity to various agents [None]

NARRATIVE: CASE EVENT DATE: 20140801
